FAERS Safety Report 4281307-8 (Version None)
Quarter: 2004Q1

REPORT INFORMATION
  Report Type: 
  Country: None (occurrence: None)
  Receive Date: 20040112
  Receipt Date: 20030320
  Transmission Date: 20041129
  Serious: Yes (Other)
  Sender: FDA-Public Use
  Company Number: NSADSS2003013682

PATIENT
  Age: 63 Year
  Sex: Female
  Weight: 101 kg

DRUGS (3)
  1. REOPRO [Suspect]
     Indication: ILL-DEFINED DISORDER
     Dosage: 25 MG, 1 IN 1 AS NECESSARY INTRAVENOUS BOLUS;  17 , 1 IN 1 AS NECESSARY, INTRAVENOUS BOLUS
     Route: 040
     Dates: start: 20030304, end: 20030304
  2. REOPRO [Suspect]
     Indication: ILL-DEFINED DISORDER
     Dosage: 25 MG, 1 IN 1 AS NECESSARY INTRAVENOUS BOLUS;  17 , 1 IN 1 AS NECESSARY, INTRAVENOUS BOLUS
     Route: 040
     Dates: start: 20030304, end: 20030304
  3. ANGIOMAX [Concomitant]

REACTIONS (1)
  - COAGULATION TIME PROLONGED [None]
